FAERS Safety Report 25756087 (Version 3)
Quarter: 2025Q3

REPORT INFORMATION
  Report Type: Report from Study
  Country: KR (occurrence: KR)
  Receive Date: 20250903
  Receipt Date: 20250911
  Transmission Date: 20251021
  Serious: Yes (Death)
  Sender: PFIZER
  Company Number: KR-PFIZER INC-PV202500101344

PATIENT
  Age: 66 Year
  Sex: Female
  Weight: 55 kg

DRUGS (1)
  1. PAXLOVID [Suspect]
     Active Substance: NIRMATRELVIR\RITONAVIR
     Indication: COVID-19
     Dosage: [NIRMATRELVIR 300 MG/RITONAVIR 100 MG], 2X/DAY (BID)
     Route: 048
     Dates: start: 20230814, end: 20230818

REACTIONS (1)
  - Death [Fatal]

NARRATIVE: CASE EVENT DATE: 20230913
